FAERS Safety Report 24059864 (Version 1)
Quarter: 2024Q3

REPORT INFORMATION
  Report Type: Spontaneous
  Country: US (occurrence: US)
  Receive Date: 20240708
  Receipt Date: 20240708
  Transmission Date: 20241017
  Serious: No
  Sender: SANOFI AVENTIS
  Company Number: US-SA-SAC20240701000951

PATIENT
  Age: 39 Year
  Sex: Female

DRUGS (2)
  1. DUPIXENT [Suspect]
     Active Substance: DUPILUMAB
     Indication: Asthma
     Dosage: 2DF (200MG; INJECT 2 PENS ), 1X
     Route: 058
     Dates: start: 20240602, end: 20240602
  2. DUPIXENT [Suspect]
     Active Substance: DUPILUMAB
     Dosage: 1DF (200MG), QOW
     Route: 058
     Dates: start: 20240616

REACTIONS (1)
  - Injection site urticaria [Recovered/Resolved]

NARRATIVE: CASE EVENT DATE: 20240601
